FAERS Safety Report 18332747 (Version 1)
Quarter: 2020Q3

REPORT INFORMATION
  Report Type: Spontaneous
  Country: JP (occurrence: JP)
  Receive Date: 20200930
  Receipt Date: 20200930
  Transmission Date: 20201103
  Serious: Yes (Hospitalization, Other)
  Sender: FDA-Public Use
  Company Number: JP-ELI_LILLY_AND_COMPANY-JP202009009999

PATIENT
  Age: 70 Year
  Sex: Female
  Weight: 52 kg

DRUGS (11)
  1. VERZENIO [Suspect]
     Active Substance: ABEMACICLIB
     Dosage: 100 MG, BID
     Route: 048
     Dates: start: 20200801, end: 20200818
  2. VERZENIO [Suspect]
     Active Substance: ABEMACICLIB
     Dosage: 50 MG, BID
     Route: 048
     Dates: start: 20200619, end: 20200625
  3. RANMARK [Concomitant]
     Active Substance: DENOSUMAB
     Indication: BREAST CANCER STAGE IV
     Dosage: UNK
     Dates: start: 20200612
  4. RANMARK [Concomitant]
     Active Substance: DENOSUMAB
     Indication: METASTASES TO LIVER
  5. VERZENIO [Suspect]
     Active Substance: ABEMACICLIB
     Dosage: 100 MG, BID
     Route: 048
     Dates: start: 20200626, end: 20200716
  6. MIYA?BM [Concomitant]
     Active Substance: CLOSTRIDIUM BUTYRICUM SPORES STRAIN M-55
     Route: 048
  7. MAGNESIUM OXIDE. [Concomitant]
     Active Substance: MAGNESIUM OXIDE
     Dosage: 250 MG
     Route: 048
  8. RANMARK [Concomitant]
     Active Substance: DENOSUMAB
     Indication: METASTASES TO BONE
  9. DENOTAS [Concomitant]
     Active Substance: CALCIUM CARBONATE\CHOLECALCIFEROL\MAGNESIUM CARBONATE
     Route: 048
  10. VERZENIO [Suspect]
     Active Substance: ABEMACICLIB
     Indication: BREAST CANCER STAGE IV
     Dosage: 100 MG, BID
     Route: 048
     Dates: start: 20200612, end: 20200618
  11. FEMARA [Concomitant]
     Active Substance: LETROZOLE
     Indication: BREAST CANCER STAGE IV
     Dosage: 2.5 MG
     Route: 048
     Dates: start: 20200612

REACTIONS (4)
  - Hepatic function abnormal [Not Recovered/Not Resolved]
  - Thrombocytopenia [Not Recovered/Not Resolved]
  - Abdominal distension [Unknown]
  - Dizziness [Unknown]

NARRATIVE: CASE EVENT DATE: 20200619
